FAERS Safety Report 18939492 (Version 2)
Quarter: 2021Q1

REPORT INFORMATION
  Report Type: Spontaneous
  Country: PH (occurrence: PH)
  Receive Date: 20210225
  Receipt Date: 20210330
  Transmission Date: 20210420
  Serious: Yes (Disabling)
  Sender: FDA-Public Use
  Company Number: PH-AMGEN-PHLSP2021026133

PATIENT
  Age: 70 Year
  Sex: Female
  Weight: 58 kg

DRUGS (1)
  1. XGEVA [Suspect]
     Active Substance: DENOSUMAB
     Indication: PRODUCT USED FOR UNKNOWN INDICATION
     Dosage: 120 MILLIGRAM X1.7ML
     Route: 058
     Dates: end: 20210108

REACTIONS (1)
  - Gait inability [Not Recovered/Not Resolved]

NARRATIVE: CASE EVENT DATE: 20210108
